FAERS Safety Report 6203093-4 (Version None)
Quarter: 2009Q2

REPORT INFORMATION
  Report Type: 
  Country: None (occurrence: None)
  Receive Date: 20090527
  Receipt Date: 20090515
  Transmission Date: 20091009
  Serious: Yes (Other)
  Sender: FDA-Public Use
  Company Number: US-JNJFOC-20090504475

PATIENT
  Age: 12 Month
  Sex: Male

DRUGS (1)
  1. CHILDRENS TYLENOL PLUS COUGH + SORE THROAT CHERRY [Suspect]
     Indication: ACCIDENTAL EXPOSURE
     Dosage: ^MORE THAN HALF THE BOTTLE^, 1920 MG ACETAMINOPHEN/60 MG DEXTROMETHORPHAN HBR
     Route: 048

REACTIONS (2)
  - ACCIDENTAL DRUG INTAKE BY CHILD [None]
  - ACCIDENTAL OVERDOSE [None]
